FAERS Safety Report 9174389 (Version 2)
Quarter: 2013Q1

REPORT INFORMATION
  Report Type: Spontaneous
  Country: US (occurrence: None)
  Receive Date: 20130313
  Receipt Date: 20130326
  Transmission Date: 20140127
  Serious: Yes (Hospitalization)
  Sender: FDA-Public Use
  Company Number: PI-09013

PATIENT
  Age: 55 Year
  Sex: Female

DRUGS (1)
  1. CHLORAPREP (2%CHG/70%IPA) WITH TINT (FD+C YELLOW #6) [Suspect]
     Indication: PREOPERATIVE CARE
     Route: 061
     Dates: start: 20130114

REACTIONS (4)
  - Catheter site pain [None]
  - Postoperative wound infection [None]
  - Staphylococcus test positive [None]
  - Pathogen resistance [None]
